FAERS Safety Report 18039816 (Version 2)
Quarter: 2020Q4

REPORT INFORMATION
  Report Type: Report from Study
  Country: US (occurrence: US)
  Receive Date: 20200717
  Receipt Date: 20201106
  Transmission Date: 20210113
  Serious: Yes (Other)
  Sender: FDA-Public Use
  Company Number: US-IPSEN BIOPHARMACEUTICALS, INC.-2020-12475

PATIENT
  Sex: Female

DRUGS (5)
  1. METPROLOL [Concomitant]
     Active Substance: METOPROLOL
  2. ONIVYDE [Suspect]
     Active Substance: IRINOTECAN HYDROCHLORIDE
     Indication: METASTASES TO LUNG
  3. WARFARIN [Concomitant]
     Active Substance: WARFARIN
  4. ONIVYDE [Suspect]
     Active Substance: IRINOTECAN HYDROCHLORIDE
     Indication: PANCREATIC CARCINOMA
     Dosage: ONE CYCLE
     Route: 042
     Dates: start: 20200711
  5. ONIVYDE [Suspect]
     Active Substance: IRINOTECAN HYDROCHLORIDE
     Indication: METASTASES TO LIVER

REACTIONS (16)
  - Lip exfoliation [Unknown]
  - Oral pain [Unknown]
  - Malaise [Unknown]
  - Abdominal distension [Unknown]
  - Visual impairment [Unknown]
  - Abdominal discomfort [Unknown]
  - Lip swelling [Unknown]
  - Vomiting [Unknown]
  - Oral mucosal exfoliation [Unknown]
  - Nausea [Unknown]
  - Hospice care [Unknown]
  - Feeding disorder [Unknown]
  - Oral mucosal blistering [Unknown]
  - Glossodynia [Unknown]
  - Tongue blistering [Unknown]
  - Flatulence [Unknown]
